FAERS Safety Report 17477252 (Version 1)
Quarter: 2020Q1

REPORT INFORMATION
  Report Type: Spontaneous
  Country: JP (occurrence: JP)
  Receive Date: 20200229
  Receipt Date: 20200229
  Transmission Date: 20200409
  Serious: Yes (Other)
  Sender: FDA-Public Use
  Company Number: JP-ROCHE-2557477

PATIENT
  Age: 62 Year
  Sex: Female

DRUGS (4)
  1. AVASTIN [Concomitant]
     Active Substance: BEVACIZUMAB
     Indication: PRODUCT USED FOR UNKNOWN INDICATION
     Dosage: UNK
     Route: 050
  2. LUCENTIS [Suspect]
     Active Substance: RANIBIZUMAB
     Indication: MACULAR OEDEMA
     Dosage: UNK, ONCE/SINGLE
     Route: 031
  3. AVASTIN [Concomitant]
     Active Substance: BEVACIZUMAB
     Dosage: UNK
     Route: 065
  4. LUCENTIS [Suspect]
     Active Substance: RANIBIZUMAB
     Indication: RETINAL VEIN OCCLUSION
     Dosage: UNK, TWICE
     Route: 031

REACTIONS (4)
  - Macular oedema [Recovered/Resolved]
  - Disease progression [Unknown]
  - Visual acuity reduced [Recovered/Resolved]
  - Retinal vein occlusion [Recovered/Resolved]
